FAERS Safety Report 8511872-3 (Version None)
Quarter: 2012Q3

REPORT INFORMATION
  Report Type: 
  Country: None (occurrence: None)
  Receive Date: 20120716
  Receipt Date: 20120712
  Transmission Date: 20120928
  Serious: Yes (Disabling, Other)
  Sender: FDA-Public Use
  Company Number: PHHY2012DE042601

PATIENT
  Sex: Male
  Weight: 120 kg

DRUGS (2)
  1. ZOMETA [Suspect]
     Dosage: 4 MG/5 ML, QMO
     Route: 042
     Dates: start: 20060808, end: 20111101
  2. DEGARELIX [Concomitant]
     Indication: PROSTATE CANCER METASTATIC
     Dosage: 120 U, QMO
     Route: 058
     Dates: start: 20101115, end: 20111029

REACTIONS (3)
  - OSTEOLYSIS [None]
  - TOOTH LOSS [None]
  - OSTEONECROSIS OF JAW [None]
